FAERS Safety Report 17804633 (Version 5)
Quarter: 2021Q1

REPORT INFORMATION
  Report Type: Spontaneous
  Country: DE (occurrence: DE)
  Receive Date: 20200519
  Receipt Date: 20210308
  Transmission Date: 20210419
  Serious: Yes (Hospitalization, Other)
  Sender: FDA-Public Use
  Company Number: DE-PFIZER INC-2020198624

PATIENT
  Sex: Female

DRUGS (3)
  1. ZESSLY [Suspect]
     Active Substance: INFLIXIMAB
     Dosage: 200 MG
     Route: 065
     Dates: start: 201905
  2. ZESSLY [Suspect]
     Active Substance: INFLIXIMAB
     Dosage: 300 MG (EVERY 6 WEEKS)
     Route: 042
     Dates: end: 20200106
  3. ZESSLY [Suspect]
     Active Substance: INFLIXIMAB
     Dosage: 300 MG
     Route: 065
     Dates: end: 202001

REACTIONS (5)
  - Hepatic mass [Unknown]
  - Off label use [Unknown]
  - Haemangioma of liver [Unknown]
  - Rheumatoid arthritis [Recovered/Resolved]
  - Oral herpes [Unknown]

NARRATIVE: CASE EVENT DATE: 20190210
